FAERS Safety Report 8531683-2 (Version None)
Quarter: 2012Q3

REPORT INFORMATION
  Report Type: 
  Country: None (occurrence: None)
  Receive Date: 20120723
  Receipt Date: 20120711
  Transmission Date: 20120928
  Serious: Yes (Other)
  Sender: FDA-Public Use
  Company Number: US-CELGENEUS-163-50794-12061464

PATIENT
  Sex: Female

DRUGS (18)
  1. ARANESP [Concomitant]
     Dates: start: 20070614, end: 20120227
  2. DMB [Concomitant]
     Dosage: UNKNOWN
     Dates: start: 20070614, end: 20120227
  3. COMPAZINE [Concomitant]
     Dosage: UNKNOWN
     Dates: start: 20070614, end: 20120227
  4. NEULASTA [Concomitant]
     Route: 065
  5. PEPCID [Concomitant]
     Dates: start: 20120614
  6. VIDAZA [Suspect]
     Route: 065
     Dates: start: 20050301, end: 20071101
  7. AMOXIL [Concomitant]
     Dates: start: 20070614, end: 20120227
  8. CALCIUM CARBONATE [Concomitant]
     Dosage: UNKLNOWN
     Dates: start: 20070614
  9. K LYTE CL [Concomitant]
     Dates: start: 20070614
  10. LOVAZA [Concomitant]
     Dates: start: 20070614
  11. SYNTHROID [Concomitant]
     Dates: start: 20120614
  12. PREMARIN [Concomitant]
     Indication: HORMONE REPLACEMENT THERAPY
     Route: 065
  13. LOMOTIL [Concomitant]
     Dates: start: 20070614
  14. BONIVA [Concomitant]
     Dates: start: 20070614
  15. IMODIUM [Concomitant]
     Dates: start: 20070614, end: 20120227
  16. BLOOD TRANSFUSIONS [Concomitant]
     Route: 065
  17. MULTI-VITAMINS [Concomitant]
     Dates: start: 20070614
  18. VIDAZA [Suspect]
     Dosage: 130 MILLIGRAM
     Route: 058
     Dates: start: 20080301, end: 20110819

REACTIONS (5)
  - ORAL HERPES [None]
  - BREAST CANCER RECURRENT [None]
  - OEDEMA PERIPHERAL [None]
  - HAEMOGLOBIN DECREASED [None]
  - BREAST CANCER IN SITU [None]
